FAERS Safety Report 9995164 (Version 2)
Quarter: 2014Q1

REPORT INFORMATION
  Report Type: Spontaneous
  Country: US (occurrence: US)
  Receive Date: 20140311
  Receipt Date: 20140311
  Transmission Date: 20141002
  Serious: Yes (Other)
  Sender: FDA-Public Use
  Company Number: US-CELGENEUS-163-21880-13074875

PATIENT
  Age: 55 Year
  Sex: Female
  Weight: 47.67 kg

DRUGS (5)
  1. REVLIMID [Suspect]
     Indication: PLASMA CELL MYELOMA
     Dosage: 25 MILLIGRAM
     Route: 048
     Dates: start: 200909
  2. REVLIMID [Suspect]
     Dosage: 10MG-5MG
     Route: 048
     Dates: start: 201009
  3. REVLIMID [Suspect]
     Dosage: 25 MILLIGRAM
     Route: 048
     Dates: start: 20120124, end: 201206
  4. DEXAMETHASONE [Concomitant]
     Indication: PLASMA CELL MYELOMA
     Route: 065
     Dates: start: 20120124
  5. VELCADE [Concomitant]
     Indication: PLASMA CELL MYELOMA
     Route: 065
     Dates: start: 20120124

REACTIONS (2)
  - Mucoepidermoid carcinoma of salivary gland [Unknown]
  - Plasma cell myeloma [Recovering/Resolving]
